FAERS Safety Report 4315616-0 (Version None)
Quarter: 2004Q1

REPORT INFORMATION
  Report Type: 
  Country: None (occurrence: None)
  Receive Date: 20040311
  Receipt Date: 20040114
  Transmission Date: 20041129
  Serious: Yes (Life-Threatening, Other)
  Sender: FDA-Public Use
  Company Number: US-GLAXOSMITHKLINE-A0494043A

PATIENT
  Age: 22 Year
  Sex: Male
  Weight: 85.5 kg

DRUGS (3)
  1. LAMICTAL [Suspect]
     Indication: BIPOLAR DISORDER
     Route: 048
     Dates: start: 20031205, end: 20040105
  2. PAXIL [Concomitant]
     Dosage: 12.5MG PER DAY
  3. XANAX [Concomitant]
     Dosage: .5MG THREE TIMES PER DAY

REACTIONS (4)
  - DYSPNOEA [None]
  - RASH [None]
  - SENSATION OF FOREIGN BODY [None]
  - SWELLING FACE [None]
